FAERS Safety Report 7868522 (Version 8)
Quarter: 2017Q3

REPORT INFORMATION
  Report Type: Report from Study
  Country: JP (occurrence: JP)
  Receive Date: 20110323
  Receipt Date: 20170809
  Transmission Date: 20171128
  Serious: Yes (Hospitalization, Other)
  Sender: FDA-Public Use
  Company Number: PHHY2008JP11878

PATIENT
  Age: 5 Year
  Sex: Male

DRUGS (31)
  1. NEORAL [Suspect]
     Active Substance: CYCLOSPORINE
     Dosage: 100 MG, QD
     Route: 048
     Dates: start: 200806, end: 20081026
  2. PREDONINE [Concomitant]
     Active Substance: PREDNISOLONE
     Dosage: 30 MG, UNK
     Route: 048
  3. CELLCEPT [Concomitant]
     Active Substance: MYCOPHENOLATE MOFETIL\MYCOPHENOLATE MOFETIL HYDROCHLORIDE
     Dosage: 500 MG, UNK
     Route: 048
     Dates: start: 20081027
  4. GAMMA GLOBULIN [Concomitant]
     Active Substance: IMMUNE GLOBULIN NOS
     Indication: PRODUCT USED FOR UNKNOWN INDICATION
     Dosage: UNK
     Route: 065
  5. MYCOPHENOLATE MOFETIL. [Concomitant]
     Active Substance: MYCOPHENOLATE MOFETIL
     Dosage: 250 MG, UNK
     Route: 048
     Dates: start: 20120319
  6. CERTICAN [Suspect]
     Active Substance: EVEROLIMUS
     Dosage: 0.5 MG, QD
     Route: 048
     Dates: start: 20080521, end: 20080527
  7. BAKTAR [Concomitant]
     Active Substance: SULFAMETHOXAZOLE\TRIMETHOPRIM
     Dosage: 1.6 MG, QW3
     Route: 048
  8. CERTICAN [Suspect]
     Active Substance: EVEROLIMUS
     Dosage: 0.5 MG, QD
     Route: 048
     Dates: start: 20061204, end: 20070808
  9. NEORAL [Suspect]
     Active Substance: CYCLOSPORINE
     Dosage: 60 MG, QD
     Route: 048
     Dates: start: 20050909, end: 2008
  10. NEORAL [Suspect]
     Active Substance: CYCLOSPORINE
     Dosage: 66 MG, QD
     Route: 048
     Dates: end: 200806
  11. MYCOPHENOLATE MOFETIL. [Concomitant]
     Active Substance: MYCOPHENOLATE MOFETIL
     Indication: PRODUCT USED FOR UNKNOWN INDICATION
     Dosage: 500 MG, UNK
     Route: 048
     Dates: start: 20081027
  12. CERTICAN [Suspect]
     Active Substance: EVEROLIMUS
     Dosage: 0.75 MG, QD
     Route: 048
     Dates: start: 20070809, end: 20080104
  13. NEORAL [Suspect]
     Active Substance: CYCLOSPORINE
     Dosage: 36 MG, QD
     Route: 048
     Dates: end: 20050515
  14. NEORAL [Suspect]
     Active Substance: CYCLOSPORINE
     Dosage: 45 MG, QD
     Route: 048
     Dates: start: 20050524, end: 20050626
  15. BAKTAR [Concomitant]
     Active Substance: SULFAMETHOXAZOLE\TRIMETHOPRIM
     Indication: PRODUCT USED FOR UNKNOWN INDICATION
     Dosage: 1.5 MG, QW3
     Route: 048
     Dates: start: 20050415, end: 20111020
  16. CYCLOSPORINE. [Concomitant]
     Active Substance: CYCLOSPORINE
     Indication: PRODUCT USED FOR UNKNOWN INDICATION
     Dosage: UNK
     Route: 065
  17. CERTICAN [Suspect]
     Active Substance: EVEROLIMUS
     Dosage: 1.5 MG, UNK
     Route: 048
     Dates: start: 20130519, end: 20150913
  18. SIROLIMUS. [Concomitant]
     Active Substance: SIROLIMUS
     Indication: PRODUCT USED FOR UNKNOWN INDICATION
     Dosage: UNK
     Route: 065
  19. CELLCEPT [Concomitant]
     Active Substance: MYCOPHENOLATE MOFETIL\MYCOPHENOLATE MOFETIL HYDROCHLORIDE
     Indication: HEART TRANSPLANT
     Dosage: 50-100 MG, UNK
     Route: 048
     Dates: start: 20031126, end: 20041202
  20. CERTICAN [Suspect]
     Active Substance: EVEROLIMUS
     Dosage: 0.75 MG, QD
     Route: 048
     Dates: start: 20080528
  21. CERTICAN [Suspect]
     Active Substance: EVEROLIMUS
     Dosage: 2 MG, UNK
     Route: 048
     Dates: start: 20150914
  22. NEORAL [Suspect]
     Active Substance: CYCLOSPORINE
     Dosage: 54 MG, QD
     Route: 048
     Dates: start: 20050719, end: 20050908
  23. PREDONINE [Concomitant]
     Active Substance: PREDNISOLONE
     Indication: PRODUCT USED FOR UNKNOWN INDICATION
     Dosage: 60 MG, UNK
     Route: 048
     Dates: start: 20151107
  24. CERTICAN [Suspect]
     Active Substance: EVEROLIMUS
     Indication: HEART TRANSPLANT
     Dosage: 0.5 MG, QD
     Route: 048
     Dates: start: 20051208, end: 20060320
  25. NEORAL [Suspect]
     Active Substance: CYCLOSPORINE
     Indication: PRODUCT USED FOR UNKNOWN INDICATION
     Dosage: 69 MG, QD
     Route: 048
     Dates: start: 20030501, end: 20031020
  26. NEORAL [Suspect]
     Active Substance: CYCLOSPORINE
     Dosage: 60 MG, QD
     Route: 048
     Dates: start: 20031021
  27. NEORAL [Suspect]
     Active Substance: CYCLOSPORINE
     Dosage: 51 MG, QD
     Route: 048
     Dates: start: 20050516, end: 20050523
  28. NEORAL [Suspect]
     Active Substance: CYCLOSPORINE
     Dosage: 60 MG, QD
     Route: 048
     Dates: start: 20050627, end: 20050718
  29. VALIXA [Concomitant]
     Active Substance: VALGANCICLOVIR
     Indication: PRODUCT USED FOR UNKNOWN INDICATION
     Dosage: UNK
     Route: 065
  30. ZOVIRAX [Concomitant]
     Active Substance: ACYCLOVIR
     Indication: PRODUCT USED FOR UNKNOWN INDICATION
     Dosage: UNK
     Route: 065
  31. PREDONINE [Concomitant]
     Active Substance: PREDNISOLONE
     Dosage: 10 MG, UNK
     Route: 048
     Dates: end: 20160810

REACTIONS (5)
  - Pneumonia [Recovered/Resolved]
  - Hypercholesterolaemia [Not Recovered/Not Resolved]
  - Oral herpes [Recovered/Resolved]
  - Anal fistula [Unknown]
  - Stomatitis [Unknown]

NARRATIVE: CASE EVENT DATE: 20060626
